FAERS Safety Report 19377149 (Version 1)
Quarter: 2021Q2

REPORT INFORMATION
  Report Type: Spontaneous
  Country: FR (occurrence: FR)
  Receive Date: 20210604
  Receipt Date: 20210604
  Transmission Date: 20210717
  Serious: Yes (Other)
  Sender: FDA-Public Use
  Company Number: FR-GLAXOSMITHKLINE-FRCH2021034652

PATIENT
  Age: 49 Year
  Sex: Male

DRUGS (2)
  1. VOLTAREN (DICLOFENAC DIETHYLAMMONIUM SALT) [Suspect]
     Active Substance: DICLOFENAC DIETHYLAMINE
     Indication: PRODUCT USED FOR UNKNOWN INDICATION
     Dosage: UNK
     Route: 048
  2. CEFTRIAXONE. [Suspect]
     Active Substance: CEFTRIAXONE
     Indication: RESPIRATORY TRACT INFECTION
     Dosage: UNK
     Route: 030

REACTIONS (1)
  - Henoch-Schonlein purpura [Recovered/Resolved]

NARRATIVE: CASE EVENT DATE: 202009
